FAERS Safety Report 5254411-5 (Version None)
Quarter: 2007Q1

REPORT INFORMATION
  Report Type: 
  Country: None (occurrence: None)
  Receive Date: 20070302
  Receipt Date: 20070226
  Transmission Date: 20070707
  Serious: Yes (Disabling)
  Sender: FDA-Public Use
  Company Number: FR-BOEHRINGER INGELHEIM PHARMACEUTICALS, INC.-2007-FF-00072FF

PATIENT
  Sex: Male
  Weight: 96 kg

DRUGS (4)
  1. SPIRIVA [Suspect]
     Route: 055
  2. VENTOLIN [Concomitant]
     Route: 055
  3. BECOTIDE [Concomitant]
     Route: 055
  4. CORTISONE ACETATE [Concomitant]
     Route: 048

REACTIONS (3)
  - HEADACHE [None]
  - PRURITUS [None]
  - WEIGHT DECREASED [None]
